FAERS Safety Report 6192000-9 (Version None)
Quarter: 2009Q2

REPORT INFORMATION
  Report Type: 
  Country: None (occurrence: None)
  Receive Date: 20090515
  Receipt Date: 20090505
  Transmission Date: 20091009
  Serious: Yes (Hospitalization)
  Sender: FDA-Public Use
  Company Number: B0572717A

PATIENT
  Age: 15 Year
  Sex: Male

DRUGS (4)
  1. FORTUM [Suspect]
     Indication: DRUG USE FOR UNKNOWN INDICATION
     Route: 042
     Dates: start: 20090219, end: 20090302
  2. FOSCAVIR [Suspect]
     Indication: DRUG USE FOR UNKNOWN INDICATION
     Route: 042
     Dates: start: 20090219, end: 20090309
  3. CYMEVAN [Suspect]
     Indication: DRUG USE FOR UNKNOWN INDICATION
     Route: 042
     Dates: start: 20090213, end: 20090218
  4. TARGOCID [Suspect]
     Indication: DRUG USE FOR UNKNOWN INDICATION
     Route: 042
     Dates: start: 20090219, end: 20090302

REACTIONS (5)
  - EXTRAPYRAMIDAL DISORDER [None]
  - HYPERPLASIA [None]
  - MARROW HYPERPLASIA [None]
  - MENINGITIS [None]
  - PYREXIA [None]
